FAERS Safety Report 22250796 (Version 1)
Quarter: 2023Q2

REPORT INFORMATION
  Report Type: Report from Study
  Country: US (occurrence: US)
  Receive Date: 20230425
  Receipt Date: 20230425
  Transmission Date: 20230722
  Serious: Yes (Other)
  Sender: FDA-Public Use
  Company Number: US-JNJFOC-20230436303

PATIENT
  Age: 41 Year
  Sex: Female

DRUGS (3)
  1. SPRAVATO [Suspect]
     Active Substance: ESKETAMINE
     Indication: Depression
     Dosage: ^56 MG, 1 TOTAL DOSE^
     Dates: start: 20230323, end: 20230323
  2. SPRAVATO [Suspect]
     Active Substance: ESKETAMINE
     Indication: Persistent depressive disorder
     Dosage: ^84 MG, 1 TOTAL DOSE^
     Dates: start: 20230404, end: 20230404
  3. SPRAVATO [Suspect]
     Active Substance: ESKETAMINE
     Indication: Suicidal ideation

REACTIONS (2)
  - Suicidal ideation [Unknown]
  - Unevaluable event [Unknown]

NARRATIVE: CASE EVENT DATE: 20230101
